FAERS Safety Report 24812706 (Version 8)
Quarter: 2025Q3

REPORT INFORMATION
  Report Type: Report from Study
  Country: US (occurrence: US)
  Receive Date: 20250107
  Receipt Date: 20250806
  Transmission Date: 20251021
  Serious: Yes (Hospitalization, Other)
  Sender: TAKEDA
  Company Number: US-TAKEDA-2024TUS097591

PATIENT
  Sex: Female
  Weight: 88.4 kg

DRUGS (29)
  1. HUMAN IMMUNOGLOBULIN G [Suspect]
     Active Substance: HUMAN IMMUNOGLOBULIN G
     Indication: IgG deficiency
     Dosage: 10 GRAM, 1/WEEK
  2. EPINEPHRINE [Concomitant]
     Active Substance: EPINEPHRINE
  3. ACETAMINOPHEN [Concomitant]
     Active Substance: ACETAMINOPHEN
  4. VITAMIN C [Concomitant]
     Active Substance: ASCORBIC ACID
  5. FENOFIBRATE [Concomitant]
     Active Substance: FENOFIBRATE
  6. FOLIC ACID [Concomitant]
     Active Substance: FOLIC ACID
  7. TRAZODONE HCL [Concomitant]
     Active Substance: TRAZODONE HYDROCHLORIDE
  8. POTASSIUM CHLORIDE [Concomitant]
     Active Substance: POTASSIUM CHLORIDE
  9. PREGABALIN [Concomitant]
     Active Substance: PREGABALIN
  10. SERTRALINE HYDROCHLORIDE [Concomitant]
     Active Substance: SERTRALINE HYDROCHLORIDE
  11. MELATONIN [Concomitant]
     Active Substance: MELATONIN
  12. PROTONIX [Concomitant]
     Active Substance: PANTOPRAZOLE SODIUM
  13. CALCIUM\CHOLECALCIFEROL [Concomitant]
     Active Substance: CALCIUM\CHOLECALCIFEROL
  14. ALBUTEROL SULFATE [Concomitant]
     Active Substance: ALBUTEROL SULFATE
  15. LIDOCAINE [Concomitant]
     Active Substance: LIDOCAINE
  16. OZEMPIC [Concomitant]
     Active Substance: SEMAGLUTIDE
  17. NURTEC ODT [Concomitant]
     Active Substance: RIMEGEPANT SULFATE
  18. VRAYLAR [Concomitant]
     Active Substance: CARIPRAZINE
  19. DIPHENHYDRAMINE HYDROCHLORIDE [Concomitant]
     Active Substance: DIPHENHYDRAMINE HYDROCHLORIDE
  20. ALPRAZOLAM [Concomitant]
     Active Substance: ALPRAZOLAM
  21. ASPIRIN [Concomitant]
     Active Substance: ASPIRIN
  22. ROSUVASTATIN CALCIUM [Concomitant]
     Active Substance: ROSUVASTATIN CALCIUM
  23. VITAMIN B [Concomitant]
     Active Substance: VITAMIN B
  24. TRAMADOL HCL [Concomitant]
     Active Substance: TRAMADOL HYDROCHLORIDE
  25. PROLIA [Concomitant]
     Active Substance: DENOSUMAB
  26. ZOLOFT [Concomitant]
     Active Substance: SERTRALINE HYDROCHLORIDE
  27. LYRICA [Concomitant]
     Active Substance: PREGABALIN
  28. RIZATRIPTAN BENZOATE [Concomitant]
     Active Substance: RIZATRIPTAN BENZOATE
  29. ASPIRIN [Concomitant]
     Active Substance: ASPIRIN

REACTIONS (12)
  - Pneumonia [Unknown]
  - Trismus [Unknown]
  - Bronchitis [Unknown]
  - Weight fluctuation [Unknown]
  - Milk allergy [Unknown]
  - Sinusitis [Unknown]
  - Influenza [Unknown]
  - Vomiting [Unknown]
  - Migraine [Unknown]
  - Headache [Unknown]
  - Urticaria [Recovered/Resolved]
  - Pyrexia [Recovering/Resolving]
